FAERS Safety Report 9146136 (Version 1)
Quarter: 2013Q1

REPORT INFORMATION
  Report Type: Spontaneous
  Country: US (occurrence: None)
  Receive Date: 20130221
  Receipt Date: 20130221
  Transmission Date: 20140127
  Serious: Yes (Death)
  Sender: FDA-Public Use
  Company Number: 2013-00512

PATIENT
  Age: 84 Year
  Sex: Male

DRUGS (2)
  1. AMLODIPINE BESYLATE AND BENAZEPRIL HCL [Suspect]
     Indication: PRODUCT USED FOR UNKNOWN INDICATION
     Dosage: UNKNOWN  (UNKNOWN, UNKNOWN) , UNKNOWN?UNKNOWN  -
  2. CAMPHOR [Suspect]
     Indication: PRODUCT USED FOR UNKNOWN INDICATION
     Dosage: UNKNOWN  (UNKNOWN, UNKNOWN) , UNKNOWN?UNKNOWN -

REACTIONS (1)
  - Completed suicide [None]
